FAERS Safety Report 20411828 (Version 1)
Quarter: 2022Q1

REPORT INFORMATION
  Report Type: Spontaneous
  Country: DE (occurrence: DE)
  Receive Date: 20220201
  Receipt Date: 20220201
  Transmission Date: 20220423
  Serious: Yes (Other)
  Sender: FDA-Public Use
  Company Number: DE-BESINS-2021-16184

PATIENT
  Age: 50 Year
  Sex: Female
  Weight: 61 kg

DRUGS (2)
  1. ESTRADIOL [Suspect]
     Active Substance: ESTRADIOL
     Indication: Hormone replacement therapy
     Dosage: 1 DOSAGE FORMS DAILY; 1 STROKE IN THE MORNING, THERAPY START DATE: ASKU, ESTRADIOL, NOS
     Route: 065
  2. PROGESTERONE [Suspect]
     Active Substance: PROGESTERONE
     Indication: Hormone replacement therapy
     Dosage: 100 MILLIGRAM DAILY; 1 PROGESTERONE CAPSULE  100MG IN THE EVENING.
     Route: 065
     Dates: start: 2021

REACTIONS (4)
  - Postmenopausal haemorrhage [Unknown]
  - Hypersensitivity [Unknown]
  - Rash [Unknown]
  - Chest pain [Unknown]

NARRATIVE: CASE EVENT DATE: 20210101
